FAERS Safety Report 9932123 (Version 1)
Quarter: 2014Q1

REPORT INFORMATION
  Report Type: Report from Study
  Country: US (occurrence: US)
  Receive Date: 20140228
  Receipt Date: 20140228
  Transmission Date: 20141002
  Serious: No
  Sender: FDA-Public Use
  Company Number: US-ABBVIE-13P-163-1127969-00

PATIENT
  Age: 57 Year
  Sex: Male
  Weight: 83.99 kg

DRUGS (7)
  1. ANDROGEL [Suspect]
     Indication: BLOOD TESTOSTERONE DECREASED
     Dates: start: 2011
  2. ANDROGEL [Suspect]
  3. ANDROGEL [Suspect]
     Dosage: 8 PUMP ACTUATIONS PER DAY
  4. ANDROGEL [Suspect]
     Dosage: 6 PUMP ACTUATIONS PER DAY
  5. ANDROGEL [Suspect]
     Indication: BLOOD TESTOSTERONE DECREASED
     Dosage: 4 PUMPS ACTUATION A DAY
     Dates: start: 201304
  6. CRESTOR [Concomitant]
     Indication: BLOOD CHOLESTEROL INCREASED
  7. AMITIZA [Concomitant]
     Indication: CONSTIPATION

REACTIONS (6)
  - Joint swelling [Recovered/Resolved]
  - Local swelling [Recovered/Resolved]
  - Blood testosterone decreased [Not Recovered/Not Resolved]
  - Fatigue [Not Recovered/Not Resolved]
  - Drug prescribing error [Not Recovered/Not Resolved]
  - Stress [Unknown]
